FAERS Safety Report 10249058 (Version 2)
Quarter: 2014Q3

REPORT INFORMATION
  Report Type: Spontaneous
  Country: IE (occurrence: IE)
  Receive Date: 20140620
  Receipt Date: 20140902
  Transmission Date: 20150326
  Serious: Yes (Other)
  Sender: FDA-Public Use
  Company Number: IE-BAYER-2014-086976

PATIENT
  Age: 16 Year
  Sex: Female

DRUGS (1)
  1. YAZ [Suspect]
     Active Substance: DROSPIRENONE\ETHINYL ESTRADIOL
     Indication: CONTRACEPTION
     Dosage: UNK
     Route: 048
     Dates: start: 201312

REACTIONS (9)
  - Migraine [Recovered/Resolved]
  - Headache [None]
  - Chills [None]
  - Meningitis [Recovered/Resolved]
  - Chills [Recovered/Resolved]
  - Swelling [None]
  - Feeling cold [Recovered/Resolved]
  - Anaphylactoid reaction [None]
  - Dyspnoea [None]

NARRATIVE: CASE EVENT DATE: 201312
